FAERS Safety Report 6416095-X (Version None)
Quarter: 2009Q4

REPORT INFORMATION
  Report Type: 
  Country: None (occurrence: None)
  Receive Date: 20091023
  Receipt Date: 20091001
  Transmission Date: 20100525
  Serious: Yes (Other)
  Sender: FDA-Public Use
  Company Number: 2009-00010

PATIENT
  Sex: Female

DRUGS (1)
  1. NEUTROGENA OIL FREE ACNE WASH (2% SALICYLIC ACID) [Suspect]
     Indication: ACNE
     Dosage: TOPICAL
     Route: 061

REACTIONS (2)
  - CELLULITIS [None]
  - EXPIRED DRUG ADMINISTERED [None]
